FAERS Safety Report 15809144 (Version 3)
Quarter: 2019Q3

REPORT INFORMATION
  Report Type: Report from Study
  Country: US (occurrence: US)
  Receive Date: 20190110
  Receipt Date: 20190718
  Transmission Date: 20191004
  Serious: Yes (Hospitalization)
  Sender: FDA-Public Use
  Company Number: US-ACTELION-A-NJ2019-184434

PATIENT
  Sex: Female
  Weight: 98.41 kg

DRUGS (3)
  1. OPSUMIT [Suspect]
     Active Substance: MACITENTAN
     Indication: PULMONARY ARTERIAL HYPERTENSION
     Dosage: 10 MG, QD
     Route: 048
  2. DILTIAZEM. [Concomitant]
     Active Substance: DILTIAZEM
  3. ELIQUIS [Concomitant]
     Active Substance: APIXABAN

REACTIONS (6)
  - Dyspnoea [Unknown]
  - Rehabilitation therapy [Unknown]
  - Malaise [Unknown]
  - Rhinovirus infection [Unknown]
  - Asthenia [Unknown]
  - Oropharyngeal pain [Unknown]
